FAERS Safety Report 8218236-0 (Version None)
Quarter: 2012Q1

REPORT INFORMATION
  Report Type: 
  Country: None (occurrence: None)
  Receive Date: 20120319
  Receipt Date: 20120312
  Transmission Date: 20120608
  Serious: Yes (Other)
  Sender: FDA-Public Use
  Company Number: US-ROCHE-1049889

PATIENT
  Sex: Female

DRUGS (1)
  1. XELODA [Suspect]
     Indication: PANCREATIC CARCINOMA
     Dosage: DOSE: UNKNOWN
     Route: 048
     Dates: start: 20120123, end: 20120302

REACTIONS (2)
  - APHAGIA [None]
  - VOMITING [None]
